FAERS Safety Report 24643684 (Version 1)
Quarter: 2024Q4

REPORT INFORMATION
  Report Type: Spontaneous
  Country: US (occurrence: US)
  Receive Date: 20241120
  Receipt Date: 20241120
  Transmission Date: 20250115
  Serious: No
  Sender: ELI LILLY AND COMPANY
  Company Number: US-ELI_LILLY_AND_COMPANY-US202411013128

PATIENT
  Sex: Male

DRUGS (2)
  1. ERBITUX [Suspect]
     Active Substance: CETUXIMAB
     Indication: Colorectal cancer metastatic
     Dosage: 200 MG, UNKNOWN
     Route: 065
  2. ENCORAFENIB [Concomitant]
     Active Substance: ENCORAFENIB
     Indication: Product used for unknown indication

REACTIONS (1)
  - Pyrexia [Recovered/Resolved]
